FAERS Safety Report 22620008 (Version 1)
Quarter: 2023Q2

REPORT INFORMATION
  Report Type: Report from Study
  Country: US (occurrence: None)
  Receive Date: 20230620
  Receipt Date: 20230620
  Transmission Date: 20230722
  Serious: Yes (Disabling)
  Sender: FDA-Public Use
  Company Number: 2023A137650

PATIENT
  Sex: Female
  Weight: 102.1 kg

DRUGS (1)
  1. TAGRISSO [Suspect]
     Active Substance: OSIMERTINIB
     Indication: Non-small cell lung cancer
     Route: 048
     Dates: start: 202305

REACTIONS (6)
  - Balance disorder [Unknown]
  - Gait disturbance [Unknown]
  - Somnolence [Unknown]
  - Fatigue [Unknown]
  - Varicose vein [Unknown]
  - Lymphoedema [Unknown]
